FAERS Safety Report 5663383-0 (Version None)
Quarter: 2008Q1

REPORT INFORMATION
  Report Type: 
  Country: None (occurrence: None)
  Receive Date: 20080313
  Receipt Date: 20080303
  Transmission Date: 20080703
  Serious: Yes (Life-Threatening)
  Sender: FDA-Public Use
  Company Number: GB-ABBOTT-08P-167-0440637-00

PATIENT
  Age: 10 Year
  Sex: Male

DRUGS (4)
  1. VALPROATE SODIUM [Suspect]
     Indication: EPILEPSY
     Route: 048
     Dates: start: 20030101, end: 20070726
  2. CLOBAZAM [Concomitant]
     Indication: EPILEPSY
     Route: 048
     Dates: start: 20050101
  3. ETHOSUXIMIDE [Concomitant]
     Indication: EPILEPSY
     Route: 048
     Dates: start: 20050101, end: 20070726
  4. LEVETIRACETAM [Concomitant]
     Indication: EPILEPSY
     Route: 048
     Dates: start: 20070601, end: 20070601

REACTIONS (9)
  - ANGIOEDEMA [None]
  - BLISTER [None]
  - COMA [None]
  - DECUBITUS ULCER [None]
  - DEPRESSED LEVEL OF CONSCIOUSNESS [None]
  - GENERALISED OEDEMA [None]
  - OBSTRUCTIVE AIRWAYS DISORDER [None]
  - STRIDOR [None]
  - UNRESPONSIVE TO STIMULI [None]
